FAERS Safety Report 22126522 (Version 1)
Quarter: 2023Q1

REPORT INFORMATION
  Report Type: Spontaneous
  Country: US (occurrence: US)
  Receive Date: 20230322
  Receipt Date: 20230322
  Transmission Date: 20230417
  Serious: Yes (Death, Life-Threatening, Hospitalization, Other)
  Sender: FDA-Public Use
  Company Number: US-JUBILANT CADISTA PHARMACEUTICALS-2023JUB00126

PATIENT
  Age: 16 Year
  Sex: Male

DRUGS (13)
  1. METHYLPREDNISOLONE [Suspect]
     Active Substance: METHYLPREDNISOLONE
     Indication: Immunosuppressant drug therapy
     Dosage: INDUCTION THERAPY FOR THE SECOND HT, 15 MG/KG
     Route: 042
     Dates: start: 2021
  2. PREDNISONE [Suspect]
     Active Substance: PREDNISONE
     Indication: Immunosuppressant drug therapy
     Dosage: 0.24 MG/KG, EVERY 1 DAY, WEANED TO 0.24 MG/KG/ DAY BY 6-MONTH POST-TRANSPLANT
  3. PREDNISONE [Suspect]
     Active Substance: PREDNISONE
     Dosage: WEANED TO 0.24 MG/KG/ DAY BY 6-MONTH POST-TRANSPLANT
  4. MYCOPHENOLATE MOFETIL [Suspect]
     Active Substance: MYCOPHENOLATE MOFETIL
     Indication: Immunosuppressant drug therapy
     Dosage: FIRST TRANSPLANT
  5. MYCOPHENOLATE MOFETIL [Suspect]
     Active Substance: MYCOPHENOLATE MOFETIL
     Dosage: 600 MG/M2, EVERY 12 HOUR
  6. MYCOPHENOLATE MOFETIL [Suspect]
     Active Substance: MYCOPHENOLATE MOFETIL
     Dosage: 590 MG/M2, EVERY 12 HOUR, FIRST TRANSPLANT
  7. THYMOCYTE IMMUNE GLOBULIN NOS [Suspect]
     Active Substance: THYMOCYTE IMMUNE GLOBULIN NOS
     Indication: Immunosuppressant drug therapy
     Dosage: INDUCTION THERAPY FOR THE SECOND HT, 7.5 MG/KG TOTAL (CUMULATIVE DOSE: 7.5 MG/KG)
     Dates: start: 2021
  8. CYCLOSPORINE [Suspect]
     Active Substance: CYCLOSPORINE
     Indication: Immunosuppressant drug therapy
  9. TACROLIMUS [Suspect]
     Active Substance: TACROLIMUS
     Indication: Immunosuppressant drug therapy
     Dosage: MAINTENANCE IMMUNOSUPPRESSION FOR THE SECOND HT, WEANED TO 6?8 NG/ML, WEANED TO A TARGET TROUGH OF 5
  10. TACROLIMUS [Suspect]
     Active Substance: TACROLIMUS
     Dosage: INITIAL GOAL TROUGH 10?12 NG/ML
  11. PENTAMIDINE [Concomitant]
     Active Substance: PENTAMIDINE
     Indication: Antifungal prophylaxis
     Dosage: 300 MG, EVERY 1 MONTH
  12. VALGANCICLOVIR [Concomitant]
     Active Substance: VALGANCICLOVIR
     Indication: Infection prophylaxis
  13. NYSTATIN [Concomitant]
     Active Substance: NYSTATIN
     Indication: Infection prophylaxis

REACTIONS (4)
  - Hydrocephalus [Fatal]
  - Cerebral nocardiosis [Fatal]
  - Intracranial pressure increased [Fatal]
  - Pulmonary nocardiosis [Fatal]
